FAERS Safety Report 7997815-X (Version None)
Quarter: 2011Q4

REPORT INFORMATION
  Report Type: 
  Country: None (occurrence: None)
  Receive Date: 20111221
  Receipt Date: 20110811
  Transmission Date: 20120403
  Serious: No
  Sender: FDA-Public Use
  Company Number: US-PFIZER INC-K201100944

PATIENT
  Sex: Female

DRUGS (1)
  1. EPIPEN [Suspect]
     Indication: DYSPNOEA
     Dosage: UNK
     Dates: start: 20110811, end: 20110811

REACTIONS (1)
  - DRUG LABEL CONFUSION [None]
